FAERS Safety Report 19840034 (Version 2)
Quarter: 2021Q4

REPORT INFORMATION
  Report Type: Spontaneous
  Country: US (occurrence: US)
  Receive Date: 20210916
  Receipt Date: 20211118
  Transmission Date: 20220303
  Serious: No
  Sender: FDA-Public Use
  Company Number: US-GSKCCFUS-CASE-01163371_AE-68284

PATIENT
  Sex: Female

DRUGS (2)
  1. ANORO ELLIPTA [Suspect]
     Active Substance: UMECLIDINIUM BROMIDE\VILANTEROL TRIFENATATE
     Indication: Product used for unknown indication
     Dosage: UNK, 62.5/25UG
     Route: 055
  2. FOSAMAX 70 [Concomitant]
     Indication: Product used for unknown indication
     Dosage: UNK, WEEKLY

REACTIONS (1)
  - Wrong technique in device usage process [Unknown]
